FAERS Safety Report 25485337 (Version 1)
Quarter: 2025Q2

REPORT INFORMATION
  Report Type: Spontaneous
  Country: GR (occurrence: GR)
  Receive Date: 20250626
  Receipt Date: 20250626
  Transmission Date: 20250717
  Serious: Yes (Hospitalization)
  Sender: MYLAN
  Company Number: GR-ABBIO-case2-apixaban

PATIENT
  Age: 72 Year
  Sex: Male

DRUGS (4)
  1. APIXABAN [Suspect]
     Active Substance: APIXABAN
     Indication: Product used for unknown indication
  2. APIXABAN [Suspect]
     Active Substance: APIXABAN
     Route: 065
  3. APIXABAN [Suspect]
     Active Substance: APIXABAN
     Route: 065
  4. APIXABAN [Suspect]
     Active Substance: APIXABAN

REACTIONS (1)
  - Acute myocardial infarction [Unknown]
